FAERS Safety Report 17576720 (Version 1)
Quarter: 2020Q1

REPORT INFORMATION
  Report Type: Other
  Country: US (occurrence: US)
  Receive Date: 20200324
  Receipt Date: 20200324
  Transmission Date: 20200409
  Serious: No
  Sender: FDA-Public Use
  Company Number: US-ACORDA-ACO_164088_2020

PATIENT
  Age: 52 Year
  Sex: Female

DRUGS (3)
  1. CARBIDOPA/LEVODOPA [Concomitant]
     Active Substance: CARBIDOPA\LEVODOPA
     Dosage: 25/250 MG
  2. INBRIJA [Suspect]
     Active Substance: LEVODOPA
     Indication: PARKINSON^S DISEASE
     Dosage: 2 CAPSULES, PRN (NOT TO EXCEED 5 DOSES PER DAY)
     Dates: start: 202002
  3. AMANTADINE. [Suspect]
     Active Substance: AMANTADINE HYDROCHLORIDE
     Indication: PRODUCT USED FOR UNKNOWN INDICATION
     Dosage: 100 MILLIGRAM, QID
     Route: 065

REACTIONS (18)
  - Visual impairment [Unknown]
  - Cough [Unknown]
  - Malaise [Unknown]
  - Poor quality sleep [Unknown]
  - Nightmare [Unknown]
  - Nervousness [Unknown]
  - Feeling abnormal [Unknown]
  - Drug ineffective [Unknown]
  - Dizziness [Unknown]
  - Wrong technique in device usage process [Unknown]
  - Hypertension [Unknown]
  - Condition aggravated [Unknown]
  - Nausea [Unknown]
  - Spinal operation [Unknown]
  - Screaming [Unknown]
  - Tremor [Unknown]
  - Dysarthria [Unknown]
  - Sputum discoloured [Recovered/Resolved]

NARRATIVE: CASE EVENT DATE: 20200301
